FAERS Safety Report 12072011 (Version 1)
Quarter: 2016Q1

REPORT INFORMATION
  Report Type: Spontaneous
  Country: FR (occurrence: FR)
  Receive Date: 20160212
  Receipt Date: 20160212
  Transmission Date: 20160526
  Serious: Yes (Hospitalization)
  Sender: FDA-Public Use
  Company Number: FR-AMGEN-FRASP2016014333

PATIENT
  Age: 72 Year
  Sex: Male

DRUGS (14)
  1. NPLATE [Suspect]
     Active Substance: ROMIPLOSTIM
     Indication: PRODUCT USED FOR UNKNOWN INDICATION
     Dosage: 680 MUG, QWK
     Route: 058
     Dates: start: 20150710, end: 20150710
  2. ZOLADEX [Concomitant]
     Active Substance: GOSERELIN ACETATE
     Dosage: 10.8 MG, Q3MO
  3. UVEDOSE [Concomitant]
     Active Substance: CHOLECALCIFEROL
     Dosage: 1 DF, UNK
     Dates: start: 20150623
  4. METFORMIN [Concomitant]
     Active Substance: METFORMIN HYDROCHLORIDE
     Dosage: 850 MG, TID
  5. CORTANCYL [Concomitant]
     Active Substance: PREDNISONE
     Dosage: 10 MG, QD
  6. LAROXYL [Concomitant]
     Active Substance: AMITRIPTYLINE
     Dosage: 25 MG, BID
  7. ZYTIGA [Concomitant]
     Active Substance: ABIRATERONE ACETATE
     Dosage: 240 MG, QID
  8. DOLIPRANE [Concomitant]
     Active Substance: ACETAMINOPHEN
     Dosage: 3 G, QD
  9. DIAMICRON LM [Concomitant]
     Active Substance: GLICLAZIDE
     Dosage: 30 MG, QD
  10. INEXIUM                            /01479302/ [Concomitant]
     Active Substance: ESOMEPRAZOLE MAGNESIUM
     Dosage: 20 MG, QD
  11. ZOMETA [Suspect]
     Active Substance: ZOLEDRONIC ACID
     Indication: PRODUCT USED FOR UNKNOWN INDICATION
     Dosage: 4 MG, UNK
     Route: 042
     Dates: start: 20150710, end: 20150710
  12. VITAMIN B12 [Concomitant]
     Active Substance: CYANOCOBALAMIN
     Dosage: 1000 MUG, Q3MO
  13. LYRICA [Concomitant]
     Active Substance: PREGABALIN
     Dosage: 100 MG, BID
  14. ALFUZOSIN [Concomitant]
     Active Substance: ALFUZOSIN
     Dosage: 10 MG, QD

REACTIONS (1)
  - Influenza like illness [Recovered/Resolved]

NARRATIVE: CASE EVENT DATE: 20150711
